FAERS Safety Report 17802075 (Version 1)
Quarter: 2020Q2

REPORT INFORMATION
  Report Type: Spontaneous
  Country: JP (occurrence: JP)
  Receive Date: 20200519
  Receipt Date: 20200519
  Transmission Date: 20200714
  Serious: Yes (Hospitalization)
  Sender: FDA-Public Use
  Company Number: JP-MYLANLABS-2020M1048845

PATIENT
  Age: 38 Year
  Sex: Female

DRUGS (8)
  1. CYCLOPHOSPHAMIDE. [Suspect]
     Active Substance: CYCLOPHOSPHAMIDE
     Indication: BREAST CANCER FEMALE
     Dosage: 600 MILLIGRAM/SQ. METER, CYCLE, ON DAY 1 OF A 2 WEEK CYCLE; RECEIVED TOTAL 4 CYCLES
     Route: 065
  2. DEXAMETHASONE. [Suspect]
     Active Substance: DEXAMETHASONE
     Dosage: 4 MILLIGRAM, CYCLE, ON DAYS 2 TO 4 OF A 2 WEEK CYCLE; RECEIVED TOTAL 4 CYCLES
     Route: 065
  3. ADRIAMYCIN [Suspect]
     Active Substance: DOXORUBICIN HYDROCHLORIDE
     Indication: BREAST CANCER FEMALE
     Dosage: 60 MILLIGRAM/SQ. METER, CYCLE, ON DAY 1 OF A 2 WEEK CYCLE; RECEIVED TOTAL 4 CYCLES
     Route: 065
  4. PEGFILGRASTIM [Concomitant]
     Active Substance: PEGFILGRASTIM
     Indication: BREAST CANCER FEMALE
     Dosage: ON DAY 2 OF A 2 WEEK CYCLE; RECEIVED TOTAL 4 CYCLES
     Route: 065
  5. METHYLPREDNISOLONE. [Suspect]
     Active Substance: METHYLPREDNISOLONE
     Indication: PNEUMONITIS
     Dosage: 1000 MILLIGRAM, QD
     Route: 042
  6. DEXAMETHASONE. [Suspect]
     Active Substance: DEXAMETHASONE
     Indication: BREAST CANCER
     Dosage: 12 MILLIGRAM, CYCLE, ON DAY 1 OF A 2 WEEK CYCLE; RECEIVED TOTAL 4 CYCLES
     Route: 065
  7. PREDNISOLONE. [Suspect]
     Active Substance: PREDNISOLONE
     Indication: PNEUMONITIS
     Dosage: 25 MILLIGRAM, QD, 0.5 MG/KG/DAY
     Route: 048
  8. DOCETAXEL. [Suspect]
     Active Substance: DOCETAXEL
     Indication: BREAST CANCER FEMALE
     Route: 065

REACTIONS (2)
  - Pneumocystis jirovecii pneumonia [Recovering/Resolving]
  - Respiratory failure [Recovering/Resolving]
